FAERS Safety Report 21391680 (Version 1)
Quarter: 2022Q3

REPORT INFORMATION
  Report Type: Spontaneous
  Country: US (occurrence: US)
  Receive Date: 20220929
  Receipt Date: 20220929
  Transmission Date: 20221027
  Serious: Yes (Other)
  Sender: FDA-Public Use
  Company Number: US-Amarin Pharma, Inc.-2022AMR001255

PATIENT
  Age: 71 Year
  Sex: Female
  Weight: 71.21 kg

DRUGS (8)
  1. VASCEPA [Suspect]
     Active Substance: ICOSAPENT ETHYL
     Indication: Mitral valve prolapse
     Route: 048
  2. VASCEPA [Suspect]
     Active Substance: ICOSAPENT ETHYL
     Route: 048
  3. ARMOUR THYROID [Concomitant]
     Active Substance: THYROID, PORCINE
     Indication: Product used for unknown indication
     Dosage: 60 MG DAILY FOR 6 DAYS THEN 30 MG ON DAY 7
  4. SYNTHROID [Concomitant]
     Active Substance: LEVOTHYROXINE SODIUM
     Indication: Product used for unknown indication
     Dosage: 88 MCG DAILY, 3 DAYS PER WEEK
  5. CALCIUM [Concomitant]
     Active Substance: CALCIUM
     Indication: Product used for unknown indication
  6. VITAMIN D3 [Concomitant]
     Active Substance: CHOLECALCIFEROL
     Indication: Product used for unknown indication
  7. IBUPROFEN [Concomitant]
     Active Substance: IBUPROFEN
     Indication: Product used for unknown indication
     Dosage: AS NEEDED.
  8. Psyllium powder [Concomitant]
     Indication: Product used for unknown indication

REACTIONS (20)
  - Pelvic pain [Unknown]
  - Mitral valve incompetence [Unknown]
  - Cataract [Unknown]
  - Blood cholesterol increased [Unknown]
  - Immune system disorder [Unknown]
  - Peripheral coldness [Unknown]
  - Cricopharyngeal achalasia [Unknown]
  - Hypotension [Unknown]
  - Gastrointestinal disorder [Unknown]
  - Haemorrhoids [Unknown]
  - Cataract operation [Recovered/Resolved]
  - Astigmatism [Unknown]
  - Low density lipoprotein increased [Unknown]
  - Concussion [Unknown]
  - Headache [Unknown]
  - Alopecia universalis [Unknown]
  - Condition aggravated [Unknown]
  - Prescribed underdose [Unknown]
  - Product dose omission issue [Unknown]
  - Product prescribing issue [Unknown]

NARRATIVE: CASE EVENT DATE: 20180101
